FAERS Safety Report 4834651-7 (Version None)
Quarter: 2005Q4

REPORT INFORMATION
  Report Type: 
  Country: None (occurrence: None)
  Receive Date: 20051122
  Receipt Date: 20050608
  Transmission Date: 20060501
  Serious: No
  Sender: FDA-Public Use
  Company Number: US-BRISTOL-MYERS SQUIBB COMPANY-12997532

PATIENT
  Sex: Female

DRUGS (3)
  1. PRAVACOL TABS [Suspect]
     Dates: end: 20050503
  2. LORATADINE [Suspect]
     Dates: end: 20050503
  3. ALAVERT [Suspect]
     Dates: end: 20050503

REACTIONS (2)
  - FATIGUE [None]
  - PAIN [None]
